FAERS Safety Report 7575629-2 (Version None)
Quarter: 2011Q2

REPORT INFORMATION
  Report Type: 
  Country: None (occurrence: None)
  Receive Date: 20110628
  Receipt Date: 20110622
  Transmission Date: 20111010
  Serious: Yes (Other)
  Sender: FDA-Public Use
  Company Number: PT-AMGEN-PRTSP2011026478

PATIENT
  Age: 83 Year
  Sex: Male

DRUGS (3)
  1. ENBREL [Suspect]
     Dosage: 25 MG, WEEKLY
     Route: 058
     Dates: start: 20110301, end: 20110516
  2. ENBREL [Suspect]
     Dosage: 25 MG, QWK
  3. ENBREL [Suspect]
     Indication: RHEUMATOID ARTHRITIS
     Dosage: 50 MG, QWK
     Dates: start: 20081101, end: 20110201

REACTIONS (1)
  - NEPHROLITHIASIS [None]
